FAERS Safety Report 17858120 (Version 1)
Quarter: 2020Q2

REPORT INFORMATION
  Report Type: Spontaneous
  Country: CA (occurrence: CA)
  Receive Date: 20200604
  Receipt Date: 20200604
  Transmission Date: 20200714
  Serious: Yes (Other)
  Sender: FDA-Public Use
  Company Number: CA-ROCHE-2607025

PATIENT
  Age: 66 Year
  Sex: Female
  Weight: 63 kg

DRUGS (8)
  1. ACTEMRA [Suspect]
     Active Substance: TOCILIZUMAB
     Indication: RHEUMATOID ARTHRITIS
     Route: 042
  2. PREVNAR 13 [Suspect]
     Active Substance: PNEUMOCOCCAL 13-VALENT CONJUGATE VACCINE
     Indication: PNEUMONIA
     Route: 030
  3. ASA [Concomitant]
     Active Substance: ASPIRIN
     Indication: OFF LABEL USE
     Route: 065
  4. ACTEMRA [Suspect]
     Active Substance: TOCILIZUMAB
     Indication: OFF LABEL USE
  5. ACETAMINOPHEN. [Concomitant]
     Active Substance: ACETAMINOPHEN
  6. CELEBREX [Concomitant]
     Active Substance: CELECOXIB
  7. PREVNAR 13 [Suspect]
     Active Substance: PNEUMOCOCCAL 13-VALENT CONJUGATE VACCINE
     Indication: IMMUNISATION
     Dosage: SOLUTION FOR INJECTION IN PRE-FILLED SYRINGE
     Route: 065
  8. FOLIC ACID. [Concomitant]
     Active Substance: FOLIC ACID

REACTIONS (36)
  - Bite [Not Recovered/Not Resolved]
  - Blood pressure increased [Not Recovered/Not Resolved]
  - Oxygen saturation decreased [Not Recovered/Not Resolved]
  - Sinusitis [Not Recovered/Not Resolved]
  - Swelling [Not Recovered/Not Resolved]
  - Gingival abscess [Not Recovered/Not Resolved]
  - Gingivitis [Not Recovered/Not Resolved]
  - Musculoskeletal stiffness [Recovered/Resolved]
  - Thyroid mass [Recovered/Resolved]
  - Tooth disorder [Recovered/Resolved]
  - Weight increased [Not Recovered/Not Resolved]
  - Cough [Recovered/Resolved]
  - Rheumatoid arthritis [Not Recovered/Not Resolved]
  - Weight decreased [Not Recovered/Not Resolved]
  - Blood pressure systolic increased [Not Recovered/Not Resolved]
  - Influenza [Not Recovered/Not Resolved]
  - Nasopharyngitis [Not Recovered/Not Resolved]
  - Pain [Not Recovered/Not Resolved]
  - Peripheral swelling [Not Recovered/Not Resolved]
  - Toothache [Not Recovered/Not Resolved]
  - Blood pressure systolic abnormal [Not Recovered/Not Resolved]
  - Oral infection [Recovered/Resolved]
  - Tooth infection [Recovered/Resolved]
  - Product use issue [Unknown]
  - Body temperature decreased [Not Recovered/Not Resolved]
  - Hypersensitivity [Recovered/Resolved]
  - Infusion related reaction [Not Recovered/Not Resolved]
  - Pyrexia [Not Recovered/Not Resolved]
  - Quality of life decreased [Not Recovered/Not Resolved]
  - Off label use [Unknown]
  - Gingival erythema [Recovered/Resolved]
  - Fatigue [Not Recovered/Not Resolved]
  - Gingival swelling [Recovered/Resolved]
  - Heart rate decreased [Not Recovered/Not Resolved]
  - Nodule [Not Recovered/Not Resolved]
  - Tooth abscess [Not Recovered/Not Resolved]
